FAERS Safety Report 4721720-5 (Version None)
Quarter: 2005Q3

REPORT INFORMATION
  Report Type: 
  Country: None (occurrence: None)
  Receive Date: 20050721
  Receipt Date: 20050315
  Transmission Date: 20060218
  Serious: No
  Sender: FDA-Public Use
  Company Number: US-BRISTOL-MYERS SQUIBB COMPANY-12897773

PATIENT
  Age: 85 Year
  Sex: Female
  Weight: 73 kg

DRUGS (7)
  1. COUMADIN [Suspect]
     Indication: CARDIAC DISORDER
     Dosage: 7.5 MG REDUCED TO 5 MG
     Route: 048
  2. NIFEDIPINE [Concomitant]
  3. LISINOPRIL [Concomitant]
  4. PAROXETINE HCL [Concomitant]
  5. LOVASTATIN [Concomitant]
  6. FUROSEMIDE [Concomitant]
  7. KLOR-CON [Concomitant]

REACTIONS (1)
  - HAEMORRHAGE [None]
